FAERS Safety Report 10926346 (Version 2)
Quarter: 2018Q1

REPORT INFORMATION
  Report Type: Spontaneous
  Country: US (occurrence: US)
  Receive Date: 20150318
  Receipt Date: 20180305
  Transmission Date: 20180508
  Serious: Yes (Hospitalization)
  Sender: FDA-Public Use
  Company Number: US-PFIZER INC-2015092225

PATIENT
  Age: 54 Year
  Sex: Female
  Weight: 100 kg

DRUGS (1)
  1. RELPAX [Suspect]
     Active Substance: ELETRIPTAN HYDROBROMIDE
     Dosage: 40 MG, 1X/DAY
     Route: 048

REACTIONS (1)
  - Malaise [Not Recovered/Not Resolved]
